FAERS Safety Report 23319986 (Version 1)
Quarter: 2023Q4

REPORT INFORMATION
  Report Type: Spontaneous
  Country: JP (occurrence: JP)
  Receive Date: 20231220
  Receipt Date: 20231220
  Transmission Date: 20240110
  Serious: Yes (Other)
  Sender: FDA-Public Use
  Company Number: JP-CHUGAI-2023042025

PATIENT
  Age: 85 Year
  Sex: Female

DRUGS (2)
  1. VABYSMO [Suspect]
     Active Substance: FARICIMAB\FARICIMAB-SVOA
     Indication: Neovascular age-related macular degeneration
     Dosage: 6.0, ONCE/MONTH
     Route: 065
     Dates: start: 20220913, end: 20231024
  2. VABYSMO [Suspect]
     Active Substance: FARICIMAB\FARICIMAB-SVOA
     Dosage: 6.0, ONCE/8WEEKS
     Route: 065
     Dates: end: 20231024

REACTIONS (1)
  - Choroidal haemorrhage [Not Recovered/Not Resolved]

NARRATIVE: CASE EVENT DATE: 20231024
